FAERS Safety Report 7587214-7 (Version None)
Quarter: 2011Q3

REPORT INFORMATION
  Report Type: 
  Country: None (occurrence: None)
  Receive Date: 20110701
  Receipt Date: 20110622
  Transmission Date: 20111222
  Serious: Yes (Hospitalization, Other)
  Sender: FDA-Public Use
  Company Number: US-BAYER-201033830NA

PATIENT
  Age: 20 Year
  Sex: Female
  Weight: 55.329 kg

DRUGS (8)
  1. VICODIN [Concomitant]
  2. ASCORBIC ACID [Concomitant]
  3. YASMIN [Suspect]
     Indication: DYSMENORRHOEA
     Dosage: UNK UNK, UNK
     Route: 065
     Dates: start: 20010901, end: 20021101
  4. MECLIZINE [Concomitant]
  5. TYLENOL-500 [Concomitant]
  6. LYSINE [Concomitant]
  7. MULTI-VITAMINS [Concomitant]
  8. ADVIL LIQUI-GELS [Concomitant]

REACTIONS (4)
  - CEREBROVASCULAR ACCIDENT [None]
  - PULMONARY EMBOLISM [None]
  - POST STROKE DEPRESSION [None]
  - DEEP VEIN THROMBOSIS [None]
